FAERS Safety Report 16194699 (Version 1)
Quarter: 2019Q2

REPORT INFORMATION
  Report Type: Spontaneous
  Country: TR (occurrence: TR)
  Receive Date: 20190414
  Receipt Date: 20190414
  Transmission Date: 20190711
  Serious: Yes (Hospitalization)
  Sender: FDA-Public Use
  Company Number: PHHY2019TR085424

PATIENT
  Age: 72 Year
  Sex: Male

DRUGS (2)
  1. LITHIUM CARBONATE. [Suspect]
     Active Substance: LITHIUM CARBONATE
     Indication: BIPOLAR DISORDER
     Dosage: 950 MG, QD
     Route: 065
  2. VALPROIC ACID. [Suspect]
     Active Substance: VALPROIC ACID
     Indication: BIPOLAR DISORDER
     Dosage: 2500 MG, QD
     Route: 065

REACTIONS (20)
  - Mania [Unknown]
  - Somnolence [Unknown]
  - Parkinsonism [Recovered/Resolved]
  - Anxiety [Unknown]
  - Bradykinesia [Recovered/Resolved]
  - Logorrhoea [Unknown]
  - Movement disorder [Recovered/Resolved]
  - Irritability [Unknown]
  - Speech disorder [Recovered/Resolved]
  - Decreased appetite [Unknown]
  - Fall [Recovered/Resolved]
  - Cogwheel rigidity [Recovered/Resolved]
  - Insomnia [Unknown]
  - Inappropriate affect [Unknown]
  - Dysphagia [Recovered/Resolved]
  - Tremor [Recovered/Resolved]
  - Posture abnormal [Recovered/Resolved]
  - Energy increased [Unknown]
  - Distractibility [Unknown]
  - Gait disturbance [Recovered/Resolved]
